FAERS Safety Report 23610587 (Version 1)
Quarter: 2024Q1

REPORT INFORMATION
  Report Type: Report from Study
  Country: NL (occurrence: NL)
  Receive Date: 20240308
  Receipt Date: 20240308
  Transmission Date: 20240409
  Serious: Yes (Hospitalization, Other)
  Sender: FDA-Public Use
  Company Number: NL-CELLTRION INC.-2024NL005341

PATIENT

DRUGS (5)
  1. BEVACIZUMAB [Suspect]
     Active Substance: BEVACIZUMAB
     Indication: Neoplasm
     Dosage: 1482 MG EVERY 3 WEEKS
     Route: 042
     Dates: start: 20230921
  2. ATEZOLIZUMAB [Suspect]
     Active Substance: ATEZOLIZUMAB
     Indication: Neoplasm
     Dosage: 1200 MG EVERY 3 WEEKS
     Route: 042
     Dates: start: 20230921
  3. ACETAMINOPHEN [Concomitant]
     Active Substance: ACETAMINOPHEN
     Dosage: 1000 MG 0.33 PER DAY
     Dates: start: 202312
  4. OXYCODONE [Concomitant]
     Active Substance: OXYCODONE\OXYCODONE HYDROCHLORIDE
     Dosage: 110 MG EVERY 2 DAYS
     Dates: start: 202312
  5. BUDESONIDE [Concomitant]
     Active Substance: BUDESONIDE
     Dosage: 4 MG EVERY 1 DAY
     Dates: start: 20240109

REACTIONS (2)
  - Enterocutaneous fistula [Unknown]
  - Intentional product use issue [Unknown]

NARRATIVE: CASE EVENT DATE: 20240129
